FAERS Safety Report 10367372 (Version 1)
Quarter: 2014Q3

REPORT INFORMATION
  Report Type: Spontaneous
  Country: US (occurrence: None)
  Receive Date: 20140805
  Receipt Date: 20140805
  Transmission Date: 20150326
  Serious: No
  Sender: FDA-Public Use
  Company Number: None

PATIENT
  Age: 14 Year
  Sex: Female

DRUGS (2)
  1. NORETHINDRONE ACETATE AND ETHINYL ESTRADIOL [Suspect]
     Active Substance: ETHINYL ESTRADIOL\NORETHINDRONE ACETATE
     Indication: CONTRACEPTION
     Dates: start: 201306, end: 201307
  2. NORETHINDRONE ACETATE AND ETHINYL ESTRADIOL [Suspect]
     Active Substance: ETHINYL ESTRADIOL\NORETHINDRONE ACETATE
     Indication: MENORRHAGIA
     Dates: start: 201306, end: 201307

REACTIONS (8)
  - Autoimmune hepatitis [None]
  - Headache [None]
  - Colitis [None]
  - Inflammatory bowel disease [None]
  - Crohn^s disease [None]
  - Cholangitis sclerosing [None]
  - Cholestasis [None]
  - Drug-induced liver injury [None]

NARRATIVE: CASE EVENT DATE: 20130712
